FAERS Safety Report 21639271 (Version 1)
Quarter: 2022Q4

REPORT INFORMATION
  Report Type: Spontaneous
  Country: CA (occurrence: CA)
  Receive Date: 20221124
  Receipt Date: 20221124
  Transmission Date: 20230113
  Serious: Yes (Life-Threatening, Hospitalization, Other)
  Sender: FDA-Public Use
  Company Number: CA-009507513-1903CAN007141

PATIENT
  Age: 82 Year
  Sex: Female

DRUGS (27)
  1. REMERON [Suspect]
     Active Substance: MIRTAZAPINE
     Indication: Choking sensation
     Dosage: 45 MILLIGRAM
     Route: 065
  2. REMERON [Suspect]
     Active Substance: MIRTAZAPINE
     Indication: Phagophobia
     Dosage: UNK
     Route: 065
  3. REMERON [Suspect]
     Active Substance: MIRTAZAPINE
     Indication: Dysphagia
     Dosage: UNK
     Route: 065
  4. REMERON [Suspect]
     Active Substance: MIRTAZAPINE
     Indication: Product used for unknown indication
  5. DULOXETINE [Suspect]
     Active Substance: DULOXETINE
     Indication: Choking sensation
     Dosage: 60 MILLIGRAM
     Route: 065
  6. DULOXETINE [Suspect]
     Active Substance: DULOXETINE
     Indication: Phagophobia
     Dosage: UNK
     Route: 065
  7. DULOXETINE [Suspect]
     Active Substance: DULOXETINE
     Dosage: UNK
     Route: 065
  8. LORAZEPAM [Suspect]
     Active Substance: LORAZEPAM
     Indication: Choking sensation
     Dosage: 10 MILLIGRAM
     Route: 065
  9. LORAZEPAM [Suspect]
     Active Substance: LORAZEPAM
     Indication: Phagophobia
     Dosage: DOSAGE FORM: NOT SPECIFIED
     Route: 065
  10. LORAZEPAM [Suspect]
     Active Substance: LORAZEPAM
     Indication: Dysphagia
     Dosage: UNK
     Route: 065
  11. LORAZEPAM [Suspect]
     Active Substance: LORAZEPAM
     Indication: Product used for unknown indication
  12. LORAZEPAM [Suspect]
     Active Substance: LORAZEPAM
     Indication: Anxiety
  13. OLANZAPINE [Suspect]
     Active Substance: OLANZAPINE
     Indication: Choking sensation
     Dosage: 10 MILLIGRAM DOSAGE FORM: NOT SPECIFIED
     Route: 065
  14. OLANZAPINE [Suspect]
     Active Substance: OLANZAPINE
     Indication: Phagophobia
     Dosage: 10 MILLIGRAM
     Route: 065
  15. OLANZAPINE [Suspect]
     Active Substance: OLANZAPINE
     Indication: Dysphagia
     Dosage: UNK
     Route: 065
  16. OLANZAPINE [Suspect]
     Active Substance: OLANZAPINE
     Indication: Product used for unknown indication
  17. RISPERIDONE [Suspect]
     Active Substance: RISPERIDONE
     Indication: Choking sensation
     Dosage: DOSAGE FORM: NOT SPECIFIED
     Route: 065
  18. RISPERIDONE [Suspect]
     Active Substance: RISPERIDONE
     Indication: Phagophobia
     Dosage: UNK
     Route: 065
  19. RISPERIDONE [Suspect]
     Active Substance: RISPERIDONE
     Indication: Dysphagia
  20. RISPERIDONE [Suspect]
     Active Substance: RISPERIDONE
     Indication: Product used for unknown indication
  21. VENLAFAXINE HYDROCHLORIDE [Suspect]
     Active Substance: VENLAFAXINE HYDROCHLORIDE
     Indication: Choking sensation
     Dosage: UNK
     Route: 065
  22. VENLAFAXINE HYDROCHLORIDE [Suspect]
     Active Substance: VENLAFAXINE HYDROCHLORIDE
     Indication: Phagophobia
     Dosage: UNK
     Route: 065
  23. VENLAFAXINE HYDROCHLORIDE [Suspect]
     Active Substance: VENLAFAXINE HYDROCHLORIDE
     Indication: Product used for unknown indication
     Dosage: UNK
     Route: 065
  24. VENLAFAXINE HYDROCHLORIDE [Suspect]
     Active Substance: VENLAFAXINE HYDROCHLORIDE
     Indication: Dysphagia
  25. VENLAFAXINE HYDROCHLORIDE [Suspect]
     Active Substance: VENLAFAXINE HYDROCHLORIDE
     Indication: Phagophobia
     Dosage: UNK
     Route: 065
  26. RISPERIDONE [Suspect]
     Active Substance: RISPERIDONE
     Indication: Choking sensation
     Dosage: UNK
     Route: 065
  27. RISPERIDONE [Suspect]
     Active Substance: RISPERIDONE
     Indication: Dysphagia

REACTIONS (5)
  - Tardive dyskinesia [Unknown]
  - Drug resistance [Unknown]
  - Phagophobia [Unknown]
  - Therapeutic product effect incomplete [Unknown]
  - Drug ineffective [Unknown]
